FAERS Safety Report 4607014-7 (Version None)
Quarter: 2005Q1

REPORT INFORMATION
  Report Type: 
  Country: None (occurrence: None)
  Receive Date: 20050310
  Receipt Date: 20050303
  Transmission Date: 20050727
  Serious: Yes (Other)
  Sender: FDA-Public Use
  Company Number: 2004101759

PATIENT
  Sex: Male
  Weight: 97.5234 kg

DRUGS (11)
  1. ZYRTEC [Suspect]
     Indication: HYPERSENSITIVITY
     Dosage: ORAL
     Route: 048
  2. LIPITOR [Suspect]
     Indication: BLOOD CHOLESTEROL
     Dosage: 40 MCG (40 MG, 1 IN 1 D), ORAL
     Route: 048
  3. CELEBREX [Suspect]
     Indication: ARTHRITIS
     Dosage: ORAL
     Route: 048
  4. ACCUPRIL [Suspect]
     Indication: HYPERTENSION
     Dosage: ORAL
     Route: 048
  5. VITAMINS (VITAMINS) [Concomitant]
  6. TOCOPHEROL (TOCOPHEROL) [Concomitant]
  7. SELENIUM (SELENIUM) [Concomitant]
  8. ASPIRIN [Concomitant]
  9. DYAZIDE [Concomitant]
  10. SERETIDE MITE (FLUTICASONE PROPIONATE, SALMETEROL XINAFOATE) [Concomitant]
  11. THEOPHYLLINE [Concomitant]

REACTIONS (4)
  - ARTHRITIS [None]
  - BLOOD PRESSURE INADEQUATELY CONTROLLED [None]
  - MUSCLE SPASMS [None]
  - PAIN [None]
